FAERS Safety Report 6991852-X (Version None)
Quarter: 2010Q3

REPORT INFORMATION
  Report Type: 
  Country: None (occurrence: None)
  Receive Date: 20100916
  Receipt Date: 20100916
  Transmission Date: 20110219
  Serious: Yes (Other)
  Sender: FDA-Public Use
  Company Number: None

PATIENT
  Age: 68 Year
  Sex: Male
  Weight: 62.5964 kg

DRUGS (1)
  1. LANSOPRAZOLE [Suspect]
     Indication: PEPTIC ULCER
     Dosage: 30MG DAILY ORAL 6 MOS TRIAL
     Route: 048

REACTIONS (2)
  - ABDOMINAL PAIN [None]
  - DRUG INEFFECTIVE [None]
